FAERS Safety Report 5838461-3 (Version None)
Quarter: 2008Q3

REPORT INFORMATION
  Report Type: 
  Country: None (occurrence: None)
  Receive Date: 20080808
  Receipt Date: 20080730
  Transmission Date: 20090109
  Serious: Yes (Hospitalization)
  Sender: FDA-Public Use
  Company Number: CH-ASTRAZENECA-2008PK01700

PATIENT
  Age: 64 Year
  Sex: Female

DRUGS (8)
  1. NEXIUM [Suspect]
     Route: 048
  2. FOSAMAX [Suspect]
     Indication: OSTEOPOROSIS
     Route: 048
     Dates: start: 20000101, end: 20051201
  3. FOSAVANCE [Suspect]
     Indication: OSTEOPOROSIS
     Dosage: 70UG/91.37 MG ONCE A WEEK
     Route: 048
     Dates: start: 20051201
  4. CALCIMAGON-D3 [Concomitant]
     Indication: OSTEOPOROSIS
     Route: 048
  5. HYGROTON [Concomitant]
     Indication: ESSENTIAL HYPERTENSION
     Route: 048
  6. ADALAT [Concomitant]
     Indication: ESSENTIAL HYPERTENSION
     Route: 048
  7. SORTIS [Concomitant]
     Indication: HYPERCHOLESTEROLAEMIA
     Route: 048
  8. TIROSINT [Concomitant]
     Indication: HYPOTHYROIDISM
     Route: 048

REACTIONS (1)
  - PATHOLOGICAL FRACTURE [None]
